FAERS Safety Report 25515261 (Version 1)
Quarter: 2025Q3

REPORT INFORMATION
  Report Type: Spontaneous
  Country: US (occurrence: US)
  Receive Date: 20250704
  Receipt Date: 20250704
  Transmission Date: 20251021
  Serious: Yes (Hospitalization, Other)
  Sender: RANBAXY
  Company Number: US-SUN PHARMACEUTICAL INDUSTRIES LTD-2025R1-514830

PATIENT
  Age: 54 Year
  Sex: Female

DRUGS (4)
  1. DOCETAXEL [Suspect]
     Active Substance: DOCETAXEL
     Indication: Gastric cancer
     Route: 042
  2. OXALIPLATIN [Suspect]
     Active Substance: OXALIPLATIN
     Indication: Gastric cancer
     Route: 065
  3. LEUCOVORIN CALCIUM [Suspect]
     Active Substance: LEUCOVORIN CALCIUM
     Indication: Gastric cancer
     Route: 065
  4. FLUOROURACIL [Suspect]
     Active Substance: FLUOROURACIL
     Indication: Gastric cancer
     Route: 065

REACTIONS (3)
  - Diabetic ketoacidosis [Recovered/Resolved]
  - Streptococcal bacteraemia [Recovered/Resolved]
  - Disease progression [Unknown]
